FAERS Safety Report 8602620-7 (Version None)
Quarter: 2012Q3

REPORT INFORMATION
  Report Type: 
  Country: None (occurrence: None)
  Receive Date: 20120817
  Receipt Date: 19900227
  Transmission Date: 20120928
  Serious: Yes (Hospitalization)
  Sender: FDA-Public Use
  Company Number: US-ROCHE-1100665

PATIENT
  Age: 44 Year
  Sex: Male

DRUGS (2)
  1. ACTIVASE [Suspect]
     Indication: ACUTE MYOCARDIAL INFARCTION
     Dosage: 11 CC IN 100 CC D5W
  2. DOPAMINE HCL [Concomitant]
     Dosage: 400 MG PER 250 CC D5W

REACTIONS (5)
  - CHEST PAIN [None]
  - NAUSEA [None]
  - EXTRASYSTOLES [None]
  - VOMITING [None]
  - PAIN IN JAW [None]
